FAERS Safety Report 18013919 (Version 3)
Quarter: 2021Q4

REPORT INFORMATION
  Report Type: Spontaneous
  Country: FR (occurrence: FR)
  Receive Date: 20200713
  Receipt Date: 20211015
  Transmission Date: 20220303
  Serious: Yes (Life-Threatening, Hospitalization)
  Sender: FDA-Public Use
  Company Number: FR-BIOGARAN-B20001026

PATIENT
  Age: 84 Year
  Sex: Female

DRUGS (7)
  1. PREDNISONE [Suspect]
     Active Substance: PREDNISONE
     Indication: Systemic scleroderma
     Dosage: 5 MILLIGRAM, QD
  2. RITUXIMAB [Suspect]
     Active Substance: RITUXIMAB
     Indication: Systemic scleroderma
     Dosage: 500 MILLIGRAM, (500 MG/8 MONTHS, LAST INFUSION ON /JUN/2019 )
     Route: 041
     Dates: start: 201501, end: 201906
  3. TOCILIZUMAB [Suspect]
     Active Substance: TOCILIZUMAB
     Indication: COVID-19 pneumonia
     Dosage: 8 MICROGRAM/KILOGRAM
     Route: 042
  4. TOCILIZUMAB [Suspect]
     Active Substance: TOCILIZUMAB
     Indication: COVID-19
  5. ANAKINRA [Suspect]
     Active Substance: ANAKINRA
     Indication: COVID-19 pneumonia
     Dosage: UNK, QD FOUR INJECTIONS RECEIVED
     Route: 058
  6. LOPINAVIR [Suspect]
     Active Substance: LOPINAVIR
     Indication: COVID-19 pneumonia
     Dosage: UNK
  7. HEPARIN [Concomitant]
     Active Substance: HEPARIN SODIUM
     Indication: Thrombosis prophylaxis
     Dosage: UNK

REACTIONS (6)
  - COVID-19 pneumonia [Recovering/Resolving]
  - Condition aggravated [Recovering/Resolving]
  - COVID-19 [Unknown]
  - Off label use [Recovering/Resolving]
  - Respiratory failure [Recovering/Resolving]
  - Intentional product use issue [Unknown]

NARRATIVE: CASE EVENT DATE: 20200101
